FAERS Safety Report 5616595-6 (Version None)
Quarter: 2008Q1

REPORT INFORMATION
  Report Type: 
  Country: None (occurrence: None)
  Receive Date: 20080207
  Receipt Date: 20070828
  Transmission Date: 20080703
  Serious: No
  Sender: FDA-Public Use
  Company Number: A0676996A

PATIENT
  Sex: Female

DRUGS (1)
  1. PAXIL CR [Suspect]
     Indication: DEPRESSION
     Dosage: 37.5MG THREE TIMES PER DAY
     Route: 048

REACTIONS (2)
  - ADVERSE REACTION [None]
  - BLOOD PRESSURE INCREASED [None]
